FAERS Safety Report 4762673-3 (Version None)
Quarter: 2005Q3

REPORT INFORMATION
  Report Type: 
  Country: None (occurrence: None)
  Receive Date: 20050907
  Receipt Date: 20050829
  Transmission Date: 20060218
  Serious: Yes (Hospitalization)
  Sender: FDA-Public Use
  Company Number: FR-JNJFOC-20050900750

PATIENT
  Age: 70 Year
  Sex: Female

DRUGS (1)
  1. ZALDIAR [Suspect]
     Indication: BACK PAIN
     Route: 048

REACTIONS (4)
  - LOSS OF CONSCIOUSNESS [None]
  - ORTHOSTATIC HYPOTENSION [None]
  - VERTIGO [None]
  - VOMITING [None]
